FAERS Safety Report 9695822 (Version 2)
Quarter: 2014Q1

REPORT INFORMATION
  Report Type: Spontaneous
  Country: US (occurrence: US)
  Receive Date: 20131119
  Receipt Date: 20140325
  Transmission Date: 20141002
  Serious: Yes (Other)
  Sender: FDA-Public Use
  Company Number: US-PFIZER INC-2013325862

PATIENT
  Age: 82 Year
  Sex: Female

DRUGS (4)
  1. NORVASC [Suspect]
     Indication: CARDIAC DISORDER
     Dosage: 5 MG, 1X/DAY
     Route: 048
  2. NORVASC [Suspect]
     Indication: HYPERTENSION
  3. LIPITOR [Suspect]
     Indication: BLOOD CHOLESTEROL INCREASED
     Dosage: 10 MG, 1X/DAY
     Route: 048
  4. MAXAIR [Concomitant]
     Indication: CHRONIC OBSTRUCTIVE PULMONARY DISEASE
     Dosage: UNK, AS NEEDED

REACTIONS (11)
  - Nephrolithiasis [Unknown]
  - Haemorrhage [Unknown]
  - Cataract [Unknown]
  - Blood pressure inadequately controlled [Unknown]
  - Haemorrhoidal haemorrhage [Unknown]
  - Osteoarthritis [Unknown]
  - Constipation [Unknown]
  - Heart rate decreased [Unknown]
  - Malaise [Unknown]
  - Extra dose administered [Unknown]
  - Dyspnoea [Unknown]
